FAERS Safety Report 13170081 (Version 2)
Quarter: 2017Q1

REPORT INFORMATION
  Report Type: Report from Study
  Country: None (occurrence: AT)
  Receive Date: 20170131
  Receipt Date: 20170201
  Transmission Date: 20170428
  Serious: Yes (Hospitalization)
  Sender: FDA-Public Use
  Company Number: AT-ABBVIE-17P-009-1857702-00

PATIENT
  Age: 75 Year
  Sex: Female

DRUGS (1)
  1. DUODOPA [Suspect]
     Active Substance: CARBIDOPA\LEVODOPA
     Indication: PARKINSON^S DISEASE
     Dosage: 16H THERAPY:??MD: 6ML??CRT 2.4ML/H??ED: 2ML
     Route: 050
     Dates: start: 20130912

REACTIONS (2)
  - Stoma site erythema [Recovered/Resolved]
  - Ophthalmic herpes zoster [Unknown]

NARRATIVE: CASE EVENT DATE: 201701
